FAERS Safety Report 26209732 (Version 1)
Quarter: 2025Q4

REPORT INFORMATION
  Report Type: Spontaneous
  Country: CN (occurrence: CN)
  Receive Date: 20251229
  Receipt Date: 20251229
  Transmission Date: 20260117
  Serious: Yes (Hospitalization)
  Sender: PFIZER
  Company Number: CN-PFIZER INC-PV202500150786

PATIENT
  Age: 29 Year
  Sex: Male
  Weight: 76 kg

DRUGS (6)
  1. CYTARABINE [Suspect]
     Active Substance: CYTARABINE
     Indication: Neoplasm malignant
     Dosage: 3.800 G, 1X/DAY
     Route: 041
     Dates: start: 20251120, end: 20251120
  2. CYTARABINE [Suspect]
     Active Substance: CYTARABINE
     Dosage: 3.800 G, 1X/DAY
     Route: 041
     Dates: start: 20251122, end: 20251122
  3. CYTARABINE [Suspect]
     Active Substance: CYTARABINE
     Dosage: 3.800 G, 1X/DAY
     Route: 041
     Dates: start: 20251124, end: 20251124
  4. METHOTREXATE SODIUM [Suspect]
     Active Substance: METHOTREXATE SODIUM
     Indication: Neoplasm malignant
     Dosage: 10.000 MG, 1X/DAY
     Route: 037
     Dates: start: 20251121, end: 20251121
  5. DEXAMETHASONE SODIUM PHOSPHATE [Suspect]
     Active Substance: DEXAMETHASONE SODIUM PHOSPHATE
     Indication: Neoplasm malignant
     Dosage: 10.000 MG, 1X/DAY
     Route: 037
     Dates: start: 20251121, end: 20251121
  6. CYTARABINE [Suspect]
     Active Substance: CYTARABINE
     Indication: Neoplasm malignant
     Dosage: 0.050 G, 1X/DAY
     Route: 037
     Dates: start: 20251121, end: 20251121

REACTIONS (7)
  - Myelosuppression [Recovering/Resolving]
  - C-reactive protein increased [Recovering/Resolving]
  - Gingival pain [Recovering/Resolving]
  - Gingival bleeding [Recovering/Resolving]
  - Enterococcal infection [Unknown]
  - Herpes simplex [Unknown]
  - Cytomegalovirus infection [Unknown]

NARRATIVE: CASE EVENT DATE: 20251124
